FAERS Safety Report 9423780 (Version 2)
Quarter: 2013Q3

REPORT INFORMATION
  Report Type: Report from Study
  Country: GB (occurrence: GB)
  Receive Date: 20130728
  Receipt Date: 20130824
  Transmission Date: 20140515
  Serious: Yes (Other)
  Sender: FDA-Public Use
  Company Number: GB-ROCHE-1253836

PATIENT
  Sex: Female
  Weight: 80 kg

DRUGS (2)
  1. TOCILIZUMAB [Suspect]
     Indication: RHEUMATOID ARTHRITIS
     Dosage: LAST DOSE PRIOR TO SAE 24/MAY/2012
     Route: 065
     Dates: start: 20120329
  2. METHOTREXATE [Concomitant]

REACTIONS (7)
  - Abdominal pain [Unknown]
  - Diarrhoea [Unknown]
  - Gastritis [Unknown]
  - Hiatus hernia [Unknown]
  - Gastritis erosive [Unknown]
  - Gastritis [Unknown]
  - Colitis [Unknown]
